FAERS Safety Report 7593315-X (Version None)
Quarter: 2011Q3

REPORT INFORMATION
  Report Type: 
  Country: None (occurrence: None)
  Receive Date: 20110706
  Receipt Date: 20090712
  Transmission Date: 20111222
  Serious: Yes (Other)
  Sender: FDA-Public Use
  Company Number: US-BAYER-200925943NA

PATIENT
  Age: 48 Year
  Sex: Male
  Weight: 104 kg

DRUGS (11)
  1. ACETYLSALICYLIC ACID SRT [Concomitant]
     Dosage: 81 MG, UNK
     Route: 048
  2. PROTAMINE SULFATE [Concomitant]
     Dosage: 340 MG, UNK
     Route: 042
     Dates: start: 20030530, end: 20030530
  3. GLUCOTROL [Concomitant]
     Dosage: 10 MG, BID
     Route: 048
  4. PAVULON [Concomitant]
     Dosage: 10 MG, UNK
     Route: 042
     Dates: start: 20030530, end: 20030530
  5. INSULIN [Concomitant]
     Dosage: 5-20 CC/HOUR
     Route: 042
     Dates: start: 20030530, end: 20030530
  6. ANCEF [Concomitant]
     Dosage: 1 G, UNK
     Route: 042
     Dates: start: 20030530, end: 20030530
  7. TRASYLOL [Suspect]
     Indication: PRODUCT USED FOR UNKNOWN INDICATION
     Dosage: 1 ML, TEST DOSE, 400 ML LOADING DOSE, 5O ML/HR INFUSION.
     Route: 042
     Dates: start: 20030530, end: 20030530
  8. HEPARIN [Concomitant]
     Dosage: 35,000 UNITS/ 60000 UNITS
     Route: 042
     Dates: start: 20030530, end: 20030530
  9. LASIX [Concomitant]
     Dosage: 100 MG, UNK
     Route: 042
     Dates: start: 20030530, end: 20030530
  10. FUROSEMIDE [Concomitant]
     Dosage: UNK
     Route: 048
     Dates: start: 20020101
  11. VERSED [Concomitant]
     Dosage: 5 MG, UNK
     Route: 042
     Dates: start: 20030530, end: 20030530

REACTIONS (10)
  - RENAL IMPAIRMENT [None]
  - RENAL INJURY [None]
  - RENAL FAILURE [None]
  - ANXIETY [None]
  - UNEVALUABLE EVENT [None]
  - DEPRESSION [None]
  - EMOTIONAL DISTRESS [None]
  - FEAR [None]
  - PAIN [None]
  - STRESS [None]
